FAERS Safety Report 14860252 (Version 2)
Quarter: 2018Q2

REPORT INFORMATION
  Report Type: Spontaneous
  Country: GB (occurrence: GB)
  Receive Date: 20180508
  Receipt Date: 20180519
  Transmission Date: 20180711
  Serious: Yes (Congenital Anomaly, Other)
  Sender: FDA-Public Use
  Company Number: GB-ACCORD-066623

PATIENT
  Age: 4 Year
  Sex: Female

DRUGS (4)
  1. DICLOFENAC/DICLOFENAC DEANOL/DICLOFENAC DIETHYLAMINE/DICLOFENAC EPOLAMINUM/DICLOFENAC HYDROXYETHYLPY [Concomitant]
     Indication: ARTHRITIS
     Route: 064
  2. PREDNISOLONE. [Suspect]
     Active Substance: PREDNISOLONE
     Indication: ARTHRITIS
     Route: 064
  3. LISINOPRIL/LISINOPRIL DIHYDRATE [Concomitant]
     Indication: HYPERTENSION
     Route: 064
  4. METHOTREXATE. [Suspect]
     Active Substance: METHOTREXATE
     Indication: JUVENILE IDIOPATHIC ARTHRITIS
     Route: 064

REACTIONS (3)
  - Foetal exposure during pregnancy [Unknown]
  - Synostosis [Not Recovered/Not Resolved]
  - Foetal methotrexate syndrome [Not Recovered/Not Resolved]
